FAERS Safety Report 26178344 (Version 1)
Quarter: 2025Q4

REPORT INFORMATION
  Report Type: Spontaneous
  Country: EU (occurrence: EU)
  Receive Date: 20251219
  Receipt Date: 20251219
  Transmission Date: 20260117
  Serious: Yes (Hospitalization, Other)
  Sender: AUROBINDO
  Company Number: EU-ABBVIE-6284498

PATIENT
  Age: 75 Year
  Sex: Male

DRUGS (10)
  1. QUETIAPINE [Suspect]
     Active Substance: QUETIAPINE
     Indication: Product used for unknown indication
     Dosage: UNK
     Route: 065
  2. FOSCARBIDOPA\FOSLEVODOPA [Suspect]
     Active Substance: FOSCARBIDOPA\FOSLEVODOPA
     Indication: Parkinson^s disease
     Dosage: CRN: 0.25 ML/H, CR: 0.34 ML/H, CRH: 0.20 ML,
  3. FOSCARBIDOPA\FOSLEVODOPA [Suspect]
     Active Substance: FOSCARBIDOPA\FOSLEVODOPA
     Dosage: CRN: 0.30 ML/H, CR: 0.42 ML/H, CRH: 0.48 ML/H, ED: 0.20 ML,
  4. FOSCARBIDOPA\FOSLEVODOPA [Suspect]
     Active Substance: FOSCARBIDOPA\FOSLEVODOPA
     Dosage: CRL: 0.25 ML/H, CR: 0.42 ML/H, CRH: 0.48 ML/H, ED: 0.20 ML,
  5. FOSCARBIDOPA\FOSLEVODOPA [Suspect]
     Active Substance: FOSCARBIDOPA\FOSLEVODOPA
     Dosage: CRN: 0,25 ML/H, CR: 0,42 ML/H, CRH: 0,46 ML/H, ED: 0,20 ML,
  6. FOSCARBIDOPA\FOSLEVODOPA [Suspect]
     Active Substance: FOSCARBIDOPA\FOSLEVODOPA
     Dosage: CRN: 0.25 ML/H, CR: 0.48 ML/H, CRH: 0.52 ML/H, ED: 0.20 ML,
  7. FOSCARBIDOPA\FOSLEVODOPA [Suspect]
     Active Substance: FOSCARBIDOPA\FOSLEVODOPA
     Dosage: CRN: 0.28 ML/H, CR: 0.48 ML/H, CRH: 0,52 ML/H, ED: 0.20 ML,
  8. FOSCARBIDOPA\FOSLEVODOPA [Suspect]
     Active Substance: FOSCARBIDOPA\FOSLEVODOPA
     Dosage: CRN: 0.25 ML/H, CR: 0.52 ML/H, CRH: 0.54 ML/H, ED: 0.20 ML,LAST ADMIN DATE 2025
  9. FOSCARBIDOPA\FOSLEVODOPA [Suspect]
     Active Substance: FOSCARBIDOPA\FOSLEVODOPA
     Dosage: CRN: 0.25 ML/H, CR: 0.50 ML/H, CRH: 0.52 ML/H, ED: 0.20 ML
  10. FOSCARBIDOPA\FOSLEVODOPA [Suspect]
     Active Substance: FOSCARBIDOPA\FOSLEVODOPA
     Dosage: CRN: 0.25 ML/H, CR: 0.34 ML/H, CRH: 0.38 ML/H, ED 0.15 ML,LAST ADMIN DATE: MAY 2025

REACTIONS (13)
  - Hallucination [Recovered/Resolved]
  - Haematemesis [Recovered/Resolved]
  - On and off phenomenon [Recovered/Resolved]
  - Dyspepsia [Recovered/Resolved]
  - Dizziness [Recovered/Resolved]
  - Infusion site erythema [Recovered/Resolved]
  - Diplopia [Not Recovered/Not Resolved]
  - Infusion site induration [Recovered/Resolved]
  - Dyskinesia [Recovered/Resolved]
  - Infusion site discolouration [Recovered/Resolved]
  - Infusion site bruising [Unknown]
  - Weight decreased [Not Recovered/Not Resolved]
  - Hypotension [Recovered/Resolved]

NARRATIVE: CASE EVENT DATE: 20250101
